FAERS Safety Report 16632543 (Version 1)
Quarter: 2019Q3

REPORT INFORMATION
  Report Type: Spontaneous
  Country: US (occurrence: US)
  Receive Date: 20190725
  Receipt Date: 20190725
  Transmission Date: 20191004
  Serious: No
  Sender: FDA-Public Use
  Company Number: US-ABBVIE-18K-163-2503552-00

PATIENT
  Sex: Female

DRUGS (3)
  1. SYNTHROID [Suspect]
     Active Substance: LEVOTHYROXINE SODIUM
     Dosage: ANOTHER DOSE
     Route: 048
  2. SYNTHROID [Suspect]
     Active Substance: LEVOTHYROXINE SODIUM
     Route: 048
     Dates: start: 2017
  3. SYNTHROID [Suspect]
     Active Substance: LEVOTHYROXINE SODIUM
     Indication: PRODUCT USED FOR UNKNOWN INDICATION
     Route: 048

REACTIONS (6)
  - Product colour issue [Unknown]
  - Thyroid hormones decreased [Unknown]
  - Pruritus [Unknown]
  - Thyroidectomy [Unknown]
  - Blood thyroid stimulating hormone abnormal [Recovering/Resolving]
  - Allergy to chemicals [Unknown]

NARRATIVE: CASE EVENT DATE: 1978
